FAERS Safety Report 5710356-5 (Version None)
Quarter: 2008Q2

REPORT INFORMATION
  Report Type: 
  Country: None (occurrence: None)
  Receive Date: 20080418
  Receipt Date: 20080408
  Transmission Date: 20081010
  Serious: Yes (Hospitalization, Other)
  Sender: FDA-Public Use
  Company Number: US-PFIZER INC-2008032105

PATIENT
  Sex: Female
  Weight: 58.1 kg

DRUGS (7)
  1. LYRICA [Suspect]
     Indication: FIBROMYALGIA
  2. CYMBALTA [Concomitant]
  3. CLONAZEPAM [Concomitant]
  4. HYDROCODONE BITARTRATE [Concomitant]
  5. CYCLOBENZAPRINE HCL [Concomitant]
  6. AMITRIPTYLINE HCL [Concomitant]
  7. FENTANYL CITRATE [Concomitant]

REACTIONS (10)
  - AGGRESSION [None]
  - AGITATION [None]
  - CONDITION AGGRAVATED [None]
  - EMOTIONAL DISORDER [None]
  - INSOMNIA [None]
  - MEMORY IMPAIRMENT [None]
  - NERVOUSNESS [None]
  - RESTLESS LEGS SYNDROME [None]
  - SUICIDE ATTEMPT [None]
  - THINKING ABNORMAL [None]
